FAERS Safety Report 11247580 (Version 1)
Quarter: 2015Q3

REPORT INFORMATION
  Report Type: Report from Study
  Country: FR (occurrence: FR)
  Receive Date: 20150708
  Receipt Date: 20150708
  Transmission Date: 20151125
  Serious: Yes (Hospitalization)
  Sender: FDA-Public Use
  Company Number: FR-GLAXOSMITHKLINE-FR2015GSK096805

PATIENT

DRUGS (8)
  1. OMEGA-3-ACID ETHYL ESTERS. [Suspect]
     Active Substance: OMEGA-3-ACID ETHYL ESTERS
     Indication: ISCHAEMIC HEART DISEASE PROPHYLAXIS
     Dosage: UNK
     Dates: start: 20080701, end: 20110714
  2. KARDEGIC [Concomitant]
     Active Substance: ASPIRIN LYSINE
  3. INEXIUM [Concomitant]
     Active Substance: ESOMEPRAZOLE
  4. PLAVIX [Concomitant]
     Active Substance: CLOPIDOGREL BISULFATE
  5. COVERSYL [Concomitant]
     Active Substance: PERINDOPRIL
  6. CARDENSIEL [Concomitant]
     Active Substance: BISOPROLOL FUMARATE
  7. KRESTOR [Concomitant]
  8. ELISOR [Concomitant]
     Active Substance: PRAVASTATIN SODIUM

REACTIONS (2)
  - Arteriogram coronary [Unknown]
  - Chest pain [Unknown]

NARRATIVE: CASE EVENT DATE: 20100126
